FAERS Safety Report 5156054-0 (Version None)
Quarter: 2006Q4

REPORT INFORMATION
  Report Type: 
  Country: None (occurrence: None)
  Receive Date: 20061122
  Receipt Date: 19930115
  Transmission Date: 20070319
  Serious: Yes (Death, Hospitalization)
  Sender: FDA-Public Use
  Company Number: US-ROCHE-22606

PATIENT
  Age: 88 Year
  Sex: Female

DRUGS (5)
  1. KETOROLAC TROMETHAMINE [Suspect]
     Indication: ANALGESIC THERAPY
     Dosage: SHE RECEIVED A TOTAL OF 16 DOSES.
     Route: 030
     Dates: start: 19921222, end: 19921226
  2. KETOROLAC TROMETHAMINE [Suspect]
     Dosage: STAT DOSE
     Route: 030
     Dates: start: 19921222, end: 19921222
  3. HYDROCODONE [Concomitant]
     Indication: ANALGESIC THERAPY
     Route: 048
  4. ACETAMINOPHEN [Concomitant]
     Indication: ANALGESIC THERAPY
     Route: 048
  5. THYROID SUPPLEMENT [Concomitant]
     Indication: THYROIDECTOMY
     Route: 048

REACTIONS (12)
  - ACUTE ABDOMEN [None]
  - ANURIA [None]
  - BACTERIAL SEPSIS [None]
  - CANDIDA SEPSIS [None]
  - DIALYSIS [None]
  - GASTRIC ULCER PERFORATION [None]
  - GENERAL PHYSICAL HEALTH DETERIORATION [None]
  - HYPOTENSION [None]
  - NAUSEA [None]
  - RENAL FAILURE [None]
  - RENAL FAILURE ACUTE [None]
  - SEPSIS [None]
